FAERS Safety Report 7244001-7 (Version None)
Quarter: 2011Q1

REPORT INFORMATION
  Report Type: 
  Country: None (occurrence: None)
  Receive Date: 20110119
  Receipt Date: 20110119
  Transmission Date: 20110831
  Serious: Yes (Other)
  Sender: FDA-Public Use
  Company Number: None

PATIENT
  Age: 40 Year
  Sex: Male
  Weight: 72.5755 kg

DRUGS (1)
  1. RECLAST [Suspect]
     Indication: OSTEOPOROSIS
     Dosage: IV ANNUAL IV
     Route: 042
     Dates: start: 20110110, end: 20110110

REACTIONS (4)
  - GROIN PAIN [None]
  - MUSCULOSKELETAL PAIN [None]
  - MYALGIA [None]
  - BONE PAIN [None]
